FAERS Safety Report 5621563-4 (Version None)
Quarter: 2008Q1

REPORT INFORMATION
  Report Type: 
  Country: None (occurrence: None)
  Receive Date: 20080211
  Receipt Date: 20080204
  Transmission Date: 20080703
  Serious: Yes (Other)
  Sender: FDA-Public Use
  Company Number: US-ASTRAZENECA-2008UW02421

PATIENT
  Age: 87 Year
  Sex: Female

DRUGS (9)
  1. SEROQUEL [Suspect]
     Indication: AGITATION
     Route: 048
     Dates: start: 20071001, end: 20080101
  2. CLONOPIN [Concomitant]
  3. LEVOTHYROXINE SODIUM [Concomitant]
  4. LIBURIDE [Concomitant]
  5. NORVASC [Concomitant]
  6. METFORMIN HCL [Concomitant]
  7. LIPITOR [Concomitant]
  8. STEROIDAL EYE DROPS [Concomitant]
  9. INSULIN [Concomitant]

REACTIONS (5)
  - ABNORMAL BEHAVIOUR [None]
  - AGITATION [None]
  - BELLIGERENCE [None]
  - DYSSTASIA [None]
  - MOVEMENT DISORDER [None]
